FAERS Safety Report 8097644-5 (Version None)
Quarter: 2012Q1

REPORT INFORMATION
  Report Type: 
  Country: None (occurrence: None)
  Receive Date: 20120128
  Receipt Date: 20110630
  Transmission Date: 20120608
  Serious: No
  Sender: FDA-Public Use
  Company Number: US-ABBOTT-11P-163-0836476-00

PATIENT
  Sex: Male

DRUGS (4)
  1. LIALDA [Concomitant]
     Indication: ANTIINFLAMMATORY THERAPY
  2. LIALDA [Concomitant]
     Indication: GASTROINTESTINAL INFLAMMATION
  3. VITAMIN TAB [Concomitant]
     Indication: VITAMIN SUPPLEMENTATION
  4. HUMIRA [Suspect]
     Indication: CROHN'S DISEASE
     Dates: start: 20060901

REACTIONS (3)
  - INFECTIOUS MONONUCLEOSIS [None]
  - SINUSITIS [None]
  - FATIGUE [None]
